FAERS Safety Report 10271513 (Version 1)
Quarter: 2014Q3

REPORT INFORMATION
  Report Type: Report from Study
  Country: US (occurrence: US)
  Receive Date: 20140701
  Receipt Date: 20140701
  Transmission Date: 20150326
  Serious: Yes (Other)
  Sender: FDA-Public Use
  Company Number: US-ABBVIE-14P-163-1251617-00

PATIENT
  Sex: Female

DRUGS (2)
  1. HUMIRA [Suspect]
     Active Substance: ADALIMUMAB
     Route: 063
  2. HUMIRA [Suspect]
     Active Substance: ADALIMUMAB
     Indication: MATERNAL EXPOSURE TIMING UNSPECIFIED
     Route: 064

REACTIONS (8)
  - Dysuria [Recovered/Resolved]
  - Foetal exposure during pregnancy [Unknown]
  - Poor sucking reflex [Recovered/Resolved]
  - Weight decreased [Recovered/Resolved]
  - Meconium stain [Recovered/Resolved]
  - Exposure during breast feeding [Unknown]
  - Vocal cord disorder [Recovered/Resolved]
  - Apnoea neonatal [Recovered/Resolved]

NARRATIVE: CASE EVENT DATE: 20130922
